FAERS Safety Report 6161811-8 (Version None)
Quarter: 2009Q2

REPORT INFORMATION
  Report Type: 
  Country: None (occurrence: None)
  Receive Date: 20090421
  Receipt Date: 20090202
  Transmission Date: 20091009
  Serious: Yes (Hospitalization)
  Sender: FDA-Public Use
  Company Number: DE-B.I. PHARMACEUTICALS,INC./RIDGEFIELD-2008-DE-01217DE

PATIENT
  Sex: Male
  Weight: 86 kg

DRUGS (1)
  1. AGGRENOX [Suspect]
     Indication: PROPHYLAXIS
     Dosage: RT: DAILY DOSE 2X/DAY
     Route: 048
     Dates: start: 20071211, end: 20071218

REACTIONS (1)
  - CEREBRAL INFARCTION [None]
